FAERS Safety Report 13577552 (Version 3)
Quarter: 2017Q3

REPORT INFORMATION
  Report Type: Spontaneous
  Country: US (occurrence: US)
  Receive Date: 20170524
  Receipt Date: 20170727
  Transmission Date: 20171127
  Serious: No
  Sender: FDA-Public Use
  Company Number: US-ELI_LILLY_AND_COMPANY-US201705006002

PATIENT
  Age: 5 Year
  Sex: Male
  Weight: 26.12 kg

DRUGS (7)
  1. CULTURELLE KIDS PACKETS [Concomitant]
     Indication: PRODUCT USED FOR UNKNOWN INDICATION
     Dosage: UNK, DAILY
     Route: 048
  2. STRATTERA [Suspect]
     Active Substance: ATOMOXETINE HYDROCHLORIDE
     Indication: ATTENTION DEFICIT/HYPERACTIVITY DISORDER
     Dosage: 60 MG, BID
     Route: 048
     Dates: start: 20170417
  3. STRATTERA [Suspect]
     Active Substance: ATOMOXETINE HYDROCHLORIDE
     Indication: ATTENTION DEFICIT/HYPERACTIVITY DISORDER
     Dosage: UNK, DAILY
     Route: 065
  4. STRATTERA [Suspect]
     Active Substance: ATOMOXETINE HYDROCHLORIDE
     Indication: ATTENTION DEFICIT/HYPERACTIVITY DISORDER
     Dosage: 25 MG, BID
     Route: 048
     Dates: start: 20160817, end: 20161004
  5. STRATTERA [Suspect]
     Active Substance: ATOMOXETINE HYDROCHLORIDE
     Indication: ATTENTION DEFICIT/HYPERACTIVITY DISORDER
     Dosage: 40 MG, BID
     Route: 048
     Dates: start: 20161005, end: 20170416
  6. PEPTO-BISMOL [Concomitant]
     Active Substance: BISMUTH SUBSALICYLATE
     Indication: PRODUCT USED FOR UNKNOWN INDICATION
     Dosage: 30 ML, PRN
     Route: 048
  7. STRATTERA [Suspect]
     Active Substance: ATOMOXETINE HYDROCHLORIDE
     Dosage: 40 MG, BID
     Route: 048
     Dates: start: 20161005, end: 20170416

REACTIONS (8)
  - Eating disorder [Unknown]
  - Nausea [Unknown]
  - Flat affect [Unknown]
  - Off label use [Unknown]
  - Abdominal pain upper [Unknown]
  - Drug intolerance [Recovered/Resolved]
  - Drug dose omission [Unknown]
  - Overdose [Unknown]

NARRATIVE: CASE EVENT DATE: 20160817
